FAERS Safety Report 6303194-6 (Version None)
Quarter: 2009Q3

REPORT INFORMATION
  Report Type: 
  Country: None (occurrence: None)
  Receive Date: 20090810
  Receipt Date: 20090311
  Transmission Date: 20100115
  Serious: No
  Sender: FDA-Public Use
  Company Number: A0719169A

PATIENT
  Age: 27 Year
  Sex: Female
  Weight: 63.6 kg

DRUGS (3)
  1. PAROXETINE HCL [Suspect]
     Dosage: 40MG PER DAY
     Route: 048
     Dates: start: 20080201, end: 20080331
  2. GEODON [Concomitant]
     Dosage: 80MG PER DAY
  3. XANAX [Concomitant]
     Dosage: 1MG AS REQUIRED

REACTIONS (1)
  - DRUG EXPOSURE DURING PREGNANCY [None]
